FAERS Safety Report 8299426-8 (Version None)
Quarter: 2012Q2

REPORT INFORMATION
  Report Type: 
  Country: None (occurrence: None)
  Receive Date: 20120419
  Receipt Date: 20120416
  Transmission Date: 20120825
  Serious: Yes (Other)
  Sender: FDA-Public Use
  Company Number: US-PFIZER INC-2012070088

PATIENT
  Sex: Female
  Weight: 56.689 kg

DRUGS (7)
  1. VALIUM [Concomitant]
     Indication: ANXIETY
  2. VALIUM [Concomitant]
     Indication: NERVE INJURY
     Dosage: 10 MG, 3X/DAY
  3. LYRICA [Suspect]
     Indication: FIBROMYALGIA
     Dosage: 150 MG, 3X/DAY
     Route: 048
     Dates: start: 20101001, end: 20120101
  4. LYRICA [Suspect]
     Indication: ARTHRITIS
  5. LYRICA [Suspect]
     Indication: SPONDYLITIS
  6. VALIUM [Concomitant]
     Indication: MUSCLE SPASMS
  7. OXYCODONE [Concomitant]
     Indication: PAIN
     Dosage: 325 MG, AS NEEDED

REACTIONS (1)
  - CONVULSION [None]
